FAERS Safety Report 10078381 (Version 2)
Quarter: 2014Q3

REPORT INFORMATION
  Report Type: Spontaneous
  Country: IT (occurrence: IT)
  Receive Date: 20140415
  Receipt Date: 20140709
  Transmission Date: 20150326
  Serious: Yes (Hospitalization)
  Sender: FDA-Public Use
  Company Number: IT-ACCORD-023053

PATIENT
  Age: 75 Year
  Sex: Male

DRUGS (1)
  1. AMLODIPINE [Suspect]
     Active Substance: AMLODIPINE BESYLATE
     Indication: HYPERTENSION
     Dosage: REDUCED TO 5 MG/DAY
     Route: 048
     Dates: start: 20090101, end: 20140226

REACTIONS (4)
  - Faecaloma [Recovered/Resolved]
  - Pleural effusion [Unknown]
  - Abdominal pain upper [Recovered/Resolved]
  - Pyrexia [Unknown]

NARRATIVE: CASE EVENT DATE: 20140210
